FAERS Safety Report 24795382 (Version 2)
Quarter: 2025Q1

REPORT INFORMATION
  Report Type: Spontaneous
  Country: BR (occurrence: BR)
  Receive Date: 20241231
  Receipt Date: 20250107
  Transmission Date: 20250409
  Serious: Yes (Other)
  Sender: SANDOZ
  Company Number: BR-002147023-NVSC2024BR222045

PATIENT
  Age: 68 Year
  Sex: Female

DRUGS (3)
  1. KISQALI [Suspect]
     Active Substance: RIBOCICLIB
     Route: 048
     Dates: start: 20241107
  2. KISQALI [Suspect]
     Active Substance: RIBOCICLIB
     Indication: Breast cancer
     Route: 048
     Dates: start: 20240620
  3. ZOLEDRONIC ACID [Suspect]
     Active Substance: ZOLEDRONIC ACID
     Indication: Product used for unknown indication
     Route: 065
     Dates: start: 202408

REACTIONS (9)
  - Metastasis [Unknown]
  - Metastases to pelvis [Unknown]
  - Pelvic discomfort [Unknown]
  - Dyschezia [Unknown]
  - Gait disturbance [Unknown]
  - Pelvic pain [Recovered/Resolved]
  - Fear of falling [Unknown]
  - Constipation [Unknown]
  - Arthralgia [Recovered/Resolved]

NARRATIVE: CASE EVENT DATE: 20241001
